FAERS Safety Report 11334824 (Version 10)
Quarter: 2017Q4

REPORT INFORMATION
  Report Type: Report from Study
  Country: GB (occurrence: GB)
  Receive Date: 20150804
  Receipt Date: 20171130
  Transmission Date: 20180320
  Serious: Yes (Other)
  Sender: FDA-Public Use
  Company Number: GB-ROCHE-1617272

PATIENT
  Age: 73 Year
  Sex: Male

DRUGS (4)
  1. LORAZEPAM. [Concomitant]
     Active Substance: LORAZEPAM
     Route: 065
  2. ESBRIET [Suspect]
     Active Substance: PIRFENIDONE
     Indication: IDIOPATHIC PULMONARY FIBROSIS
     Route: 048
     Dates: start: 20140121
  3. ORAMORPH [Concomitant]
     Active Substance: MORPHINE SULFATE
     Indication: DYSPNOEA
     Route: 065
  4. OXYGEN. [Concomitant]
     Active Substance: OXYGEN

REACTIONS (10)
  - Decreased appetite [Not Recovered/Not Resolved]
  - Oxygen consumption increased [Unknown]
  - Dyspnoea [Not Recovered/Not Resolved]
  - Cough [Not Recovered/Not Resolved]
  - Weight decreased [Not Recovered/Not Resolved]
  - Depression [Not Recovered/Not Resolved]
  - Feeling cold [Not Recovered/Not Resolved]
  - Dizziness [Not Recovered/Not Resolved]
  - Sleep disorder [Unknown]
  - Panic reaction [Unknown]

NARRATIVE: CASE EVENT DATE: 20150601
